FAERS Safety Report 25123004 (Version 1)
Quarter: 2025Q1

REPORT INFORMATION
  Report Type: Spontaneous
  Country: US (occurrence: US)
  Receive Date: 20250326
  Receipt Date: 20250326
  Transmission Date: 20250408
  Serious: Yes (Other)
  Sender: MYLAN
  Company Number: US-MYLANLABS-2025M1025845

PATIENT
  Age: 59 Year
  Sex: Female

DRUGS (6)
  1. COLCHICINE [Suspect]
     Active Substance: COLCHICINE
     Indication: Pericarditis
     Dosage: 0.6 MILLIGRAM, BID
  2. IBUPROFEN [Suspect]
     Active Substance: IBUPROFEN
     Indication: Pericarditis
  3. PREDNISONE [Suspect]
     Active Substance: PREDNISONE
     Indication: Pericarditis
     Dosage: 60 MILLIGRAM, QD
  4. PREDNISONE [Suspect]
     Active Substance: PREDNISONE
  5. AZATHIOPRINE [Suspect]
     Active Substance: AZATHIOPRINE
     Indication: Pericarditis
  6. ANAKINRA [Suspect]
     Active Substance: ANAKINRA
     Indication: Pericarditis

REACTIONS (4)
  - Rebound effect [Recovered/Resolved]
  - Pericarditis [Recovered/Resolved]
  - Drug ineffective for unapproved indication [Unknown]
  - Off label use [Unknown]
